FAERS Safety Report 11291980 (Version 1)
Quarter: 2015Q3

REPORT INFORMATION
  Report Type: Spontaneous
  Country: US (occurrence: US)
  Receive Date: 20150722
  Receipt Date: 20150722
  Transmission Date: 20151125
  Serious: No
  Sender: FDA-Public Use
  Company Number: US-ASTRAZENECA-2015SE63747

PATIENT
  Sex: Male
  Weight: 95 kg

DRUGS (23)
  1. XANAX [Suspect]
     Active Substance: ALPRAZOLAM
     Indication: PANIC ATTACK
     Dosage: GENERIC
     Route: 048
     Dates: start: 201501
  2. VITAMIN D [Concomitant]
     Active Substance: CHOLECALCIFEROL
     Indication: VITAMIN D DEFICIENCY
     Route: 048
  3. XANAX [Suspect]
     Active Substance: ALPRAZOLAM
     Indication: PANIC ATTACK
     Route: 048
     Dates: start: 1980, end: 2000
  4. VITAMIN B6 [Concomitant]
     Active Substance: PYRIDOXINE HYDROCHLORIDE
     Route: 048
  5. VITAMIN A [Concomitant]
     Active Substance: VITAMIN A
     Route: 048
  6. EYE CAPSULES [Concomitant]
  7. BENADRYL [Concomitant]
     Active Substance: DIPHENHYDRAMINE HYDROCHLORIDE
  8. SEROQUEL [Suspect]
     Active Substance: QUETIAPINE FUMARATE
     Route: 048
  9. MULTIVITAMIN [Concomitant]
     Active Substance: VITAMINS
     Route: 048
  10. FIBRE SUPPLEMENT [Concomitant]
     Route: 048
  11. XANAX [Suspect]
     Active Substance: ALPRAZOLAM
     Indication: ANXIETY
     Route: 048
     Dates: start: 1980, end: 2000
  12. XANAX [Suspect]
     Active Substance: ALPRAZOLAM
     Indication: ANXIETY
     Route: 048
     Dates: start: 201410
  13. VOLCANIC ASH [Concomitant]
  14. TRAZODONE [Concomitant]
     Active Substance: TRAZODONE HYDROCHLORIDE
  15. DEPLIN [Concomitant]
     Active Substance: LEVOMEFOLATE CALCIUM
     Indication: ACID BASE BALANCE ABNORMAL
  16. ABILIFY [Suspect]
     Active Substance: ARIPIPRAZOLE
     Dosage: NON AZ PRODUCT
     Route: 065
  17. MOTRIN [Concomitant]
     Active Substance: IBUPROFEN
     Indication: INSOMNIA
     Dosage: AT NIGHT
  18. VITAMIN B1 [Concomitant]
     Active Substance: THIAMINE HYDROCHLORIDE
     Route: 048
  19. BROMELAIN [Concomitant]
     Active Substance: BROMELAINS
  20. XANAX [Suspect]
     Active Substance: ALPRAZOLAM
     Indication: PANIC ATTACK
     Route: 048
     Dates: start: 201410
  21. ADVIL PM [Concomitant]
     Active Substance: DIPHENHYDRAMINE CITRATE\IBUPROFEN
  22. XANAX [Suspect]
     Active Substance: ALPRAZOLAM
     Indication: ANXIETY
     Dosage: GENERIC
     Route: 048
     Dates: start: 201501
  23. TYLENOL [Concomitant]
     Active Substance: ACETAMINOPHEN
     Indication: INSOMNIA
     Dosage: AT NIGHT

REACTIONS (7)
  - Anger [Unknown]
  - Irritability [Unknown]
  - Drug ineffective [Unknown]
  - Musculoskeletal stiffness [Unknown]
  - Pain [Unknown]
  - Anxiety [Not Recovered/Not Resolved]
  - Myalgia [Unknown]
